FAERS Safety Report 25105988 (Version 1)
Quarter: 2025Q1

REPORT INFORMATION
  Report Type: Report from Study
  Country: GB (occurrence: GB)
  Receive Date: 20250321
  Receipt Date: 20250321
  Transmission Date: 20250409
  Serious: Yes (Other)
  Sender: NOVARTIS
  Company Number: GB-002147023-NVSC2025GB005706

PATIENT
  Sex: Female

DRUGS (1)
  1. COSENTYX [Suspect]
     Active Substance: SECUKINUMAB
     Indication: Psoriasis
     Dosage: 300 MG, QMO
     Route: 058

REACTIONS (8)
  - Lower respiratory tract infection [Unknown]
  - Malaise [Unknown]
  - Complication associated with device [Unknown]
  - Chest pain [Unknown]
  - Limb discomfort [Unknown]
  - Psoriasis [Unknown]
  - Pruritus [Unknown]
  - Hypertension [Unknown]
